FAERS Safety Report 20448572 (Version 1)
Quarter: 2022Q1

REPORT INFORMATION
  Report Type: Other
  Country: DE (occurrence: DE)
  Receive Date: 20220209
  Receipt Date: 20220209
  Transmission Date: 20220423
  Serious: Yes (Congenital Anomaly, Other)
  Sender: FDA-Public Use
  Company Number: DE-EMBRYOTOX-202011694

PATIENT
  Age: 1 Day
  Sex: Male
  Weight: 2.6 kg

DRUGS (3)
  1. DULOXETINE [Suspect]
     Active Substance: DULOXETINE
     Indication: Generalised anxiety disorder
     Dosage: 30 MG, QD
     Route: 064
  2. PROGESTERONE [Concomitant]
     Active Substance: PROGESTERONE
     Indication: Prophylaxis of abortion
     Dosage: 200 MG, QD
     Route: 064
  3. LORA ADGC [Concomitant]
     Indication: Hypersensitivity
     Dosage: 10 MG, QD
     Route: 064

REACTIONS (4)
  - Tethered cord syndrome [Unknown]
  - Haemangioma [Unknown]
  - Congenital skin dimples [Unknown]
  - Foetal exposure during pregnancy [Unknown]

NARRATIVE: CASE EVENT DATE: 20210601
